FAERS Safety Report 14226981 (Version 3)
Quarter: 2018Q1

REPORT INFORMATION
  Report Type: Spontaneous
  Country: US (occurrence: US)
  Receive Date: 20171127
  Receipt Date: 20180319
  Transmission Date: 20180508
  Serious: Yes (Death)
  Sender: FDA-Public Use
  Company Number: US-JNJFOC-20171126827

PATIENT
  Sex: Female

DRUGS (1)
  1. XARELTO [Suspect]
     Active Substance: RIVAROXABAN
     Indication: PRODUCT USED FOR UNKNOWN INDICATION
     Route: 048

REACTIONS (1)
  - Death [Fatal]
